FAERS Safety Report 14351794 (Version 16)
Quarter: 2018Q2

REPORT INFORMATION
  Report Type: Spontaneous
  Country: CA (occurrence: CA)
  Receive Date: 20180104
  Receipt Date: 20180627
  Transmission Date: 20180711
  Serious: Yes (Hospitalization, Other)
  Sender: FDA-Public Use
  Company Number: CA-CELLTRION INC.-2017CA016713

PATIENT

DRUGS (11)
  1. INFLECTRA [Suspect]
     Active Substance: INFLIXIMAB-DYYB
     Dosage: 730 MG, CYCLIC (THEN EVERY 8 WEEKS)
     Route: 042
     Dates: start: 20171123
  2. PENTASA [Concomitant]
     Active Substance: MESALAMINE
  3. INFLECTRA [Suspect]
     Active Substance: INFLIXIMAB-DYYB
     Dosage: 5 MG/KG CYCLIC, EVERY 8 WEEKS
     Route: 042
     Dates: start: 20180313
  4. PREDNISONE. [Concomitant]
     Active Substance: PREDNISONE
     Dosage: 5 MG, 8 TABS IN DECREASING DOSE
     Route: 065
  5. INFLECTRA [Suspect]
     Active Substance: INFLIXIMAB-DYYB
     Dosage: 5 MG/KG CYCLIC, EVERY 8 WEEKS
     Route: 042
     Dates: start: 20180419
  6. INFLECTRA [Suspect]
     Active Substance: INFLIXIMAB-DYYB
     Dosage: 730 MG, CYCLIC (THEN EVERY 8 WEEKS)
     Route: 042
  7. INFLECTRA [Suspect]
     Active Substance: INFLIXIMAB-DYYB
     Dosage: 5 MG/KG CYCLIC, EVERY 8 WEEKS
     Route: 042
     Dates: start: 20180115
  8. IMURAN [Concomitant]
     Active Substance: AZATHIOPRINE
  9. INFLECTRA [Suspect]
     Active Substance: INFLIXIMAB-DYYB
     Indication: COLITIS ULCERATIVE
     Dosage: 700 MG, THEN EVERY 8 WEEKS
     Route: 042
     Dates: start: 20171123
  10. INFLECTRA [Suspect]
     Active Substance: INFLIXIMAB-DYYB
     Dosage: 10 MG/KG CYCLIC, EVERY 8 WEEKS
     Route: 065
     Dates: start: 20180522
  11. ASACOL [Concomitant]
     Active Substance: MESALAMINE

REACTIONS (11)
  - Condition aggravated [Unknown]
  - Chills [Recovered/Resolved]
  - Rash generalised [Not Recovered/Not Resolved]
  - Pruritus [Recovered/Resolved]
  - Product use issue [Unknown]
  - Extra dose administered [Unknown]
  - Fatigue [Not Recovered/Not Resolved]
  - Pneumonia [Recovering/Resolving]
  - Rash [Recovered/Resolved]
  - Diarrhoea [Recovered/Resolved]
  - Infusion site oedema [Recovered/Resolved]

NARRATIVE: CASE EVENT DATE: 20171123
